FAERS Safety Report 9228827 (Version 1)
Quarter: 2013Q2

REPORT INFORMATION
  Report Type: Spontaneous
  Country: US (occurrence: US)
  Receive Date: 20130412
  Receipt Date: 20130412
  Transmission Date: 20140414
  Serious: No
  Sender: FDA-Public Use
  Company Number: US-PFIZER INC-2013115849

PATIENT
  Age: 16 Year
  Sex: Female
  Weight: 49.89 kg

DRUGS (6)
  1. DILANTIN [Suspect]
     Indication: CONVULSION
     Dosage: 4 ML, 3X/DAY
     Route: 048
     Dates: start: 201302
  2. DILANTIN [Interacting]
     Dosage: 4ML IN THE MORNING AND 5ML IN THE EVENING
     Route: 048
     Dates: start: 2013
  3. DILANTIN [Interacting]
     Dosage: 3 ML, 2X/DAY
     Route: 048
     Dates: start: 2013
  4. DILANTIN [Interacting]
     Dosage: 2.5 ML, 2X/DAY
     Route: 048
     Dates: start: 2013
  5. DILANTIN [Interacting]
     Dosage: UNK
     Route: 048
  6. CLARITIN [Interacting]
     Indication: HYPERSENSITIVITY
     Dosage: 10 MG, 1X/DAY
     Route: 048

REACTIONS (2)
  - Drug interaction [Unknown]
  - Hepatic enzyme increased [Unknown]
